FAERS Safety Report 6302342-1 (Version None)
Quarter: 2009Q3

REPORT INFORMATION
  Report Type: 
  Country: None (occurrence: None)
  Receive Date: 20090810
  Receipt Date: 20090727
  Transmission Date: 20100115
  Serious: Yes (Death, Hospitalization, Other)
  Sender: FDA-Public Use
  Company Number: NSADSS2001027048

PATIENT
  Age: 77 Year
  Sex: Female
  Weight: 62 kg

DRUGS (9)
  1. REMICADE [Suspect]
     Route: 041
     Dates: start: 20010605
  2. REMICADE [Suspect]
     Route: 041
     Dates: start: 20010605
  3. REMICADE [Suspect]
     Indication: RHEUMATOID ARTHRITIS
     Route: 041
     Dates: start: 20010605
  4. METHOTREXATE [Concomitant]
     Route: 058
     Dates: start: 19961101
  5. METHOTREXATE [Concomitant]
     Route: 058
     Dates: start: 19961101
  6. METHYLPREDNISOLONE [Concomitant]
  7. OMEPRAZOLE [Concomitant]
  8. CALCIUM WITH VITAMIN D [Concomitant]
  9. ACFOL [Concomitant]

REACTIONS (6)
  - CHOLESTASIS [None]
  - DISSEMINATED TUBERCULOSIS [None]
  - GRANULOMATOUS LIVER DISEASE [None]
  - PULMONARY TUBERCULOSIS [None]
  - URINARY TRACT INFECTION [None]
  - UTERINE CANCER [None]
